FAERS Safety Report 6427528-7 (Version None)
Quarter: 2009Q4

REPORT INFORMATION
  Report Type: 
  Country: None (occurrence: None)
  Receive Date: 20091104
  Receipt Date: 20091026
  Transmission Date: 20100525
  Serious: Yes (Other)
  Sender: FDA-Public Use
  Company Number: PHEH2009US14534

PATIENT
  Age: 51 Year
  Sex: Male

DRUGS (3)
  1. OXCARBAZEPINE [Suspect]
     Indication: BIPOLAR DISORDER
     Dosage: 900 MG, QD
     Route: 048
     Dates: start: 20090301
  2. INSULIN [Concomitant]
     Dosage: 300 UNITS QD
  3. EFFEXOR XR [Concomitant]
     Dosage: 37.5 MG, UNK

REACTIONS (5)
  - DIABETIC KETOACIDOSIS [None]
  - HYPERGLYCAEMIA [None]
  - INSULIN RESISTANT DIABETES [None]
  - PROSTATE CANCER [None]
  - SURGERY [None]
